FAERS Safety Report 7765804-6 (Version None)
Quarter: 2011Q3

REPORT INFORMATION
  Report Type: 
  Country: None (occurrence: None)
  Receive Date: 20110921
  Receipt Date: 20110823
  Transmission Date: 20111222
  Serious: Yes (Other)
  Sender: FDA-Public Use
  Company Number: US-BAYER-2011-078007

PATIENT
  Age: 37 Year
  Sex: Female
  Weight: 118 kg

DRUGS (3)
  1. ALEVE (CAPLET) [Suspect]
     Dosage: UNK
     Route: 048
     Dates: start: 20091221, end: 20100102
  2. MULTI-VITAMIN [Concomitant]
  3. CONTRACEPTIVES NOS [Concomitant]

REACTIONS (5)
  - SWELLING FACE [None]
  - RASH ERYTHEMATOUS [None]
  - URTICARIA [None]
  - EYE SWELLING [None]
  - HYPERSENSITIVITY [None]
